FAERS Safety Report 19468745 (Version 1)
Quarter: 2021Q2

REPORT INFORMATION
  Report Type: Spontaneous
  Country: US (occurrence: US)
  Receive Date: 20210628
  Receipt Date: 20210628
  Transmission Date: 20210717
  Serious: No
  Sender: FDA-Public Use
  Company Number: US-PFIZER INC-2019512778

PATIENT
  Age: 94 Year
  Sex: Female

DRUGS (1)
  1. LYRICA [Suspect]
     Active Substance: PREGABALIN
     Indication: PAIN
     Dosage: 50 MG, AS NEEDED [1 CAP PO Q8 (EVERY 8 HOURS) PRN PAIN]
     Route: 048

REACTIONS (2)
  - Pain in extremity [Unknown]
  - Weight increased [Unknown]
